FAERS Safety Report 24713438 (Version 1)
Quarter: 2024Q4

REPORT INFORMATION
  Report Type: Spontaneous
  Country: US (occurrence: US)
  Receive Date: 20241209
  Receipt Date: 20241209
  Transmission Date: 20250115
  Serious: No
  Sender: SANOFI AVENTIS
  Company Number: US-SA-2024SA361692

PATIENT
  Age: 76 Year

DRUGS (1)
  1. LOVENOX [Suspect]
     Active Substance: ENOXAPARIN SODIUM
     Indication: Prosthetic cardiac valve stenosis
     Dosage: 40MG-160MG, BID
     Route: 058

REACTIONS (1)
  - Off label use [Unknown]
